FAERS Safety Report 25529305 (Version 1)
Quarter: 2025Q3

REPORT INFORMATION
  Report Type: Spontaneous
  Country: CA (occurrence: CA)
  Receive Date: 20250708
  Receipt Date: 20250708
  Transmission Date: 20251020
  Serious: Yes (Hospitalization, Other)
  Sender: B. BRAUN MEDICAL INC.
  Company Number: None

PATIENT
  Age: 69 Year
  Sex: Female
  Weight: 69 kg

DRUGS (34)
  1. MIDAZOLAM [Suspect]
     Active Substance: MIDAZOLAM
  2. METRONIDAZOLE [Suspect]
     Active Substance: METRONIDAZOLE
     Indication: Product used for unknown indication
  3. METRONIDAZOLE [Suspect]
     Active Substance: METRONIDAZOLE
  4. ASPIRIN [Suspect]
     Active Substance: ASPIRIN
  5. ALPRAZOLAM [Suspect]
     Active Substance: ALPRAZOLAM
  6. AMOXICILLIN TRIHYDRATE [Suspect]
     Active Substance: AMOXICILLIN
  7. ATORVASTATIN CALCIUM [Suspect]
     Active Substance: ATORVASTATIN CALCIUM
  8. BETAMETHASONE VALERATE [Suspect]
     Active Substance: BETAMETHASONE VALERATE
  9. BISACODYL [Suspect]
     Active Substance: BISACODYL
  10. CETIRIZINE HYDROCHLORIDE [Suspect]
     Active Substance: CETIRIZINE HYDROCHLORIDE
  11. CIPROFLOXACIN HYDROCHLORIDE [Suspect]
     Active Substance: CIPROFLOXACIN HYDROCHLORIDE
  12. CLARITHROMYCIN [Suspect]
     Active Substance: CLARITHROMYCIN
  13. CLOTRIMAZOLE [Suspect]
     Active Substance: CLOTRIMAZOLE
  14. DESONIDE [Suspect]
     Active Substance: DESONIDE
  15. DIPHENHYDRAMINE HYDROCHLORIDE [Suspect]
     Active Substance: DIPHENHYDRAMINE HYDROCHLORIDE
  16. FLUCONAZOLE [Suspect]
     Active Substance: FLUCONAZOLE
  17. FLUTICASONE FUROATE [Suspect]
     Active Substance: FLUTICASONE FUROATE
  18. GLYCERIN [Suspect]
     Active Substance: GLYCERIN
  19. NITROGLYCERIN [Suspect]
     Active Substance: NITROGLYCERIN
  20. HYDROCHLOROTHIAZIDE [Suspect]
     Active Substance: HYDROCHLOROTHIAZIDE
  21. HYDROCORTISONE [Suspect]
     Active Substance: HYDROCORTISONE
  22. LOPERAMIDE HYDROCHLORIDE [Suspect]
     Active Substance: LOPERAMIDE HYDROCHLORIDE
  23. MAGNESIUM OXIDE [Suspect]
     Active Substance: MAGNESIUM OXIDE
  24. NADOLOL [Suspect]
     Active Substance: NADOLOL
  25. NICODERM CQ [Suspect]
     Active Substance: NICOTINE
  26. NICOTINE [Suspect]
     Active Substance: NICOTINE
  27. OXYBUTYNIN CHLORIDE [Suspect]
     Active Substance: OXYBUTYNIN CHLORIDE
  28. PANTOPRAZOLE [Suspect]
     Active Substance: PANTOPRAZOLE
  29. AZITHROMYCIN ANHYDROUS [Suspect]
     Active Substance: AZITHROMYCIN ANHYDROUS
  30. PREDNISONE [Suspect]
     Active Substance: PREDNISONE
  31. PYRIDOXINE [Suspect]
     Active Substance: PYRIDOXINE
  32. SUCRALFATE [Suspect]
     Active Substance: SUCRALFATE
  33. TRIAMCINOLONE ACETONIDE [Suspect]
     Active Substance: TRIAMCINOLONE ACETONIDE
  34. ZOPICLONE [Suspect]
     Active Substance: ZOPICLONE

REACTIONS (1)
  - Chronic sinusitis [Unknown]
